FAERS Safety Report 8192119-7 (Version None)
Quarter: 2012Q1

REPORT INFORMATION
  Report Type: 
  Country: None (occurrence: None)
  Receive Date: 20120307
  Receipt Date: 20120301
  Transmission Date: 20120608
  Serious: Yes (Other)
  Sender: FDA-Public Use
  Company Number: US-PFIZER INC-2012056451

PATIENT
  Sex: Female

DRUGS (6)
  1. HYDROCODONE [Concomitant]
     Dosage: UNK
  2. LISINOPRIL [Concomitant]
     Dosage: UNK
  3. SPIRONOLACTONE [Concomitant]
     Dosage: UNK
  4. LYRICA [Suspect]
     Dosage: 200 MG, 2X/DAY
  5. HYDROCHLOROTHIAZIDE [Concomitant]
     Dosage: UNK
  6. MILNACIPRAN [Concomitant]
     Dosage: UNK

REACTIONS (3)
  - BACK INJURY [None]
  - IMPAIRED WORK ABILITY [None]
  - FIBROMYALGIA [None]
